FAERS Safety Report 10900910 (Version 1)
Quarter: 2015Q1

REPORT INFORMATION
  Report Type: Spontaneous
  Country: US (occurrence: None)
  Receive Date: 20150303
  Receipt Date: 20150303
  Transmission Date: 20150721
  Serious: Yes (Life-Threatening)
  Sender: FDA-Public Use
  Company Number: None

PATIENT
  Age: 68 Year
  Sex: Male
  Weight: 85.5 kg

DRUGS (11)
  1. CALCIUM [Concomitant]
     Active Substance: CALCIUM
  2. SUMATRIPTONE [Concomitant]
  3. DILTIAZEM [Concomitant]
     Active Substance: DILTIAZEM
  4. TESTOSTERONE. [Concomitant]
     Active Substance: TESTOSTERONE
  5. HARVONI [Suspect]
     Active Substance: LEDIPASVIR\SOFOSBUVIR
     Indication: HEPATITIS C
     Dosage: 1 DOSE
     Route: 048
  6. HYDROCODONE [Concomitant]
     Active Substance: HYDROCODONE
  7. SIROLIMUS. [Concomitant]
     Active Substance: SIROLIMUS
  8. MAGNESIUM [Concomitant]
     Active Substance: MAGNESIUM
  9. CHOLECALCIFEROL [Concomitant]
     Active Substance: CHOLECALCIFEROL
  10. WARFARIN [Concomitant]
     Active Substance: WARFARIN
  11. TEMAZEPAM. [Concomitant]
     Active Substance: TEMAZEPAM

REACTIONS (2)
  - Oropharyngeal cancer [None]
  - Recurrent cancer [None]

NARRATIVE: CASE EVENT DATE: 20150219
